FAERS Safety Report 8915299 (Version 3)
Quarter: 2013Q1

REPORT INFORMATION
  Report Type: Spontaneous
  Country: US (occurrence: US)
  Receive Date: 20121116
  Receipt Date: 20130325
  Transmission Date: 20140127
  Serious: Yes (Hospitalization, Disabling, Other)
  Sender: FDA-Public Use
  Company Number: US-009507513-1103USA00976

PATIENT
  Sex: Female
  Weight: 66.67 kg

DRUGS (7)
  1. FOSAMAX [Suspect]
     Indication: OSTEOPOROSIS
     Dosage: 10 MG, UNK
     Route: 048
     Dates: start: 19970917, end: 200103
  2. FOSAMAX [Suspect]
     Indication: OSTEOPENIA
     Dosage: 70 UNK, UNK
     Route: 048
     Dates: start: 200104, end: 200801
  3. FOSAMAX [Suspect]
     Indication: OSTEOPOROSIS
     Dosage: 70 MG, QW
     Route: 048
     Dates: start: 20080525, end: 20080817
  4. FOSAMAX [Suspect]
     Indication: OSTEOPENIA
  5. ALENDRONATE SODIUM [Suspect]
     Indication: OSTEOPENIA
     Dosage: 70 MG, UNK
     Route: 048
     Dates: start: 20080218, end: 20080428
  6. ALENDRONATE SODIUM [Suspect]
     Indication: OSTEOPENIA
     Dosage: 70 MG, UNK
     Route: 048
     Dates: start: 20090531, end: 20090818
  7. ALENDRONATE SODIUM [Suspect]
     Indication: OSTEOPENIA
     Dosage: 70 MG, QW
     Route: 048
     Dates: start: 20091114, end: 20100205

REACTIONS (21)
  - Femur fracture [Not Recovered/Not Resolved]
  - Open reduction of fracture [Unknown]
  - Stress fracture [Not Recovered/Not Resolved]
  - Abdominoplasty [Unknown]
  - Squamous cell carcinoma [Unknown]
  - Osteoporosis [Not Recovered/Not Resolved]
  - Low turnover osteopathy [Not Recovered/Not Resolved]
  - Fall [Unknown]
  - Femur fracture [Not Recovered/Not Resolved]
  - Bladder repair [Unknown]
  - Salpingo-oophorectomy bilateral [Unknown]
  - Hysterectomy [Unknown]
  - Diverticulitis [Unknown]
  - Cholecystectomy [Unknown]
  - Venous insufficiency [Unknown]
  - Tooth infection [Unknown]
  - Tooth infection [Unknown]
  - Endodontic procedure [Unknown]
  - Meniscus injury [Unknown]
  - Precancerous skin lesion [Unknown]
  - Gastrooesophageal reflux disease [Unknown]
